FAERS Safety Report 10731148 (Version 1)
Quarter: 2015Q1

REPORT INFORMATION
  Report Type: Spontaneous
  Country: DE (occurrence: DE)
  Receive Date: 20150122
  Receipt Date: 20150122
  Transmission Date: 20150721
  Serious: Yes (Death, Life-Threatening, Other)
  Sender: FDA-Public Use
  Company Number: DE-ABBVIE-14P-062-1312154-00

PATIENT
  Age: 76 Year
  Sex: Male
  Weight: 60 kg

DRUGS (2)
  1. DUODOPA [Suspect]
     Active Substance: CARBIDOPA\LEVODOPA
     Dosage: MD 2.0ML, CRD 5.2ML/H, CRN 2.8ML/H, ED 1.0ML
     Route: 050
     Dates: start: 20110823
  2. DUODOPA [Suspect]
     Active Substance: CARBIDOPA\LEVODOPA
     Indication: PARKINSON^S DISEASE
     Route: 050
     Dates: start: 20110817, end: 20110823

REACTIONS (6)
  - Circulatory collapse [Fatal]
  - General physical health deterioration [Unknown]
  - Pyrexia [Unknown]
  - Acute kidney injury [Fatal]
  - Urinary tract infection [Fatal]
  - Parkinson^s disease [Fatal]

NARRATIVE: CASE EVENT DATE: 20141119
